FAERS Safety Report 4390800-9 (Version None)
Quarter: 2004Q3

REPORT INFORMATION
  Report Type: 
  Country: None (occurrence: None)
  Receive Date: 20040706
  Receipt Date: 20040706
  Transmission Date: 20050211
  Serious: No
  Sender: FDA-Public Use
  Company Number: None

PATIENT
  Age: 60 Year
  Sex: Male
  Weight: 62.5964 kg

DRUGS (1)
  1. BUDESONIDE [Suspect]
     Indication: EMPHYSEMA
     Dosage: .5 MG/2 ML/ 1-2 WEEKS WITH MOST

REACTIONS (2)
  - CHEST PAIN [None]
  - PHARMACEUTICAL PRODUCT COMPLAINT [None]
